FAERS Safety Report 9506176 (Version 1)
Quarter: 2013Q1

REPORT INFORMATION
  Report Type: Spontaneous
  Country: US (occurrence: None)
  Receive Date: 20130301
  Receipt Date: 20130301
  Transmission Date: 20140127
  Serious: Yes (Other)
  Sender: FDA-Public Use
  Company Number: 355152

PATIENT
  Sex: Female

DRUGS (3)
  1. NOVOLIN R (INSULIN HUMAN) SOLUTION FOR INJECTION [Suspect]
     Indication: DIABETES MELLITUS
     Route: 058
  2. NOVOLIN N (INSULIN HUMAN) SUSPENSION FOR INJECTION [Suspect]
     Indication: DIABETES MELLITUS
     Route: 058
     Dates: end: 201206
  3. GLUCOTROL (GLIPIZIDE) [Concomitant]

REACTIONS (1)
  - Anaphylactic shock [None]
